FAERS Safety Report 7742396-9 (Version None)
Quarter: 2011Q3

REPORT INFORMATION
  Report Type: 
  Country: None (occurrence: None)
  Receive Date: 20110902
  Receipt Date: 20110829
  Transmission Date: 20111222
  Serious: Yes (Hospitalization)
  Sender: FDA-Public Use
  Company Number: 2010SP052257

PATIENT
  Age: 48 Year
  Sex: Female
  Weight: 63 kg

DRUGS (22)
  1. DEXAMETHASONE [Concomitant]
  2. ZOPICLONE [Concomitant]
  3. ENEMA [Concomitant]
  4. SENNA ALEXANDRINA [Concomitant]
  5. ONDANSETRON [Concomitant]
  6. TEMOZOLOMIDE [Suspect]
     Indication: OVARIAN CANCER
     Dosage: 150 MG/M2;QD;PO ; 200 MG/M2;QD;PO
     Route: 048
     Dates: start: 20100810, end: 20100814
  7. TEMOZOLOMIDE [Suspect]
     Indication: OVARIAN CANCER
     Dosage: 150 MG/M2;QD;PO ; 200 MG/M2;QD;PO
     Route: 048
     Dates: start: 20100907, end: 20100911
  8. GLYCEROL 2.6% [Concomitant]
  9. HYOSCINE HBR HYT [Concomitant]
  10. ABT-888 (INVESTIGATIONAL DRUG) [Suspect]
     Indication: OVARIAN CANCER
     Dosage: 40 MG;BID;PO
     Route: 048
     Dates: start: 20100810, end: 20100912
  11. ACETAMINOPHEN [Concomitant]
  12. ONDANSETRON [Concomitant]
  13. OMEPRAZOLE [Concomitant]
  14. POLYETHYL, GLYC. W/POTAS. CHLOR./SOD. BICARB. [Concomitant]
  15. CYCLIZINE [Concomitant]
  16. OMEPRAZOLE [Concomitant]
  17. MAGNESIUM SULFATE [Concomitant]
  18. CYCLIZINE [Concomitant]
  19. GAVISCON [Concomitant]
  20. DOMPERIDONE [Concomitant]
  21. AMITRIPTYLINE HCL [Concomitant]
  22. IBUPROFEN [Concomitant]

REACTIONS (9)
  - NAUSEA [None]
  - PALPITATIONS [None]
  - DECREASED APPETITE [None]
  - VOMITING [None]
  - HYPONATRAEMIA [None]
  - WHITE BLOOD CELL COUNT DECREASED [None]
  - HYPOKALAEMIA [None]
  - DYSPNOEA [None]
  - INTESTINAL OBSTRUCTION [None]
